FAERS Safety Report 20674702 (Version 1)
Quarter: 2022Q2

REPORT INFORMATION
  Report Type: Report from Study
  Country: CO (occurrence: CO)
  Receive Date: 20220405
  Receipt Date: 20220405
  Transmission Date: 20220721
  Serious: Yes (Death, Hospitalization)
  Sender: FDA-Public Use
  Company Number: CO-BAYER-2021A260962

PATIENT
  Age: 64 Year
  Sex: Female

DRUGS (6)
  1. VENTAVIS [Suspect]
     Active Substance: ILOPROST
     Indication: Pulmonary arterial hypertension
     Dosage: 6 BOXES X 30 AMPOULESEACH AMPOULE IS FOR 1 NEBULISATION
     Route: 055
     Dates: start: 20180920
  2. VENTAVIS [Suspect]
     Active Substance: ILOPROST
     Dosage: UNK, 3 TO 4 NEBULISATIONS A DAY
     Route: 055
     Dates: start: 20220310
  3. BOSENTAN [Concomitant]
     Active Substance: BOSENTAN
     Indication: Pulmonary hypertension
     Dosage: 125 MG, BID
  4. FUROSEMIDE [Concomitant]
     Active Substance: FUROSEMIDE
     Indication: Fluid retention
     Dosage: 3 DF, QD
  5. ESOMEPRAZOLE [Concomitant]
     Active Substance: ESOMEPRAZOLE
     Indication: Gastritis
     Dosage: 1 DF, QD
  6. DIHYDROCODEINE [Concomitant]
     Active Substance: DIHYDROCODEINE
     Indication: Cough
     Dosage: EVERY 8 HOURS
     Dates: start: 20211218

REACTIONS (11)
  - Pulmonary hypertension [Fatal]
  - Oedema peripheral [Fatal]
  - Face oedema [Fatal]
  - Intra-abdominal fluid collection [Fatal]
  - Inflammation [Fatal]
  - Influenza [Fatal]
  - Malaise [Fatal]
  - Fluid retention [Fatal]
  - Gastritis [Fatal]
  - Inflammation [Fatal]
  - Inappropriate schedule of product administration [Fatal]

NARRATIVE: CASE EVENT DATE: 20211126
